FAERS Safety Report 7611739-9 (Version None)
Quarter: 2011Q3

REPORT INFORMATION
  Report Type: 
  Country: None (occurrence: None)
  Receive Date: 20110715
  Receipt Date: 20110705
  Transmission Date: 20111222
  Serious: Yes (Death)
  Sender: FDA-Public Use
  Company Number: RU-SANOFI-AVENTIS-2011SA043806

PATIENT
  Age: 71 Year
  Sex: Male
  Weight: 79 kg

DRUGS (6)
  1. CLOPIDOGREL [Concomitant]
     Route: 065
  2. DRONEDARONE HCL [Suspect]
     Indication: ATRIAL FIBRILLATION
     Route: 048
     Dates: start: 20110211, end: 20110222
  3. DIGOXIN [Concomitant]
     Route: 065
     Dates: end: 20110212
  4. THIAZIDES [Concomitant]
     Route: 065
  5. VERAPAMIL [Concomitant]
     Route: 065
  6. ENALAPRIL MALEATE [Concomitant]
     Route: 065

REACTIONS (1)
  - CARDIAC DEATH [None]
